FAERS Safety Report 25177347 (Version 1)
Quarter: 2025Q2

REPORT INFORMATION
  Report Type: Spontaneous
  Country: US (occurrence: US)
  Receive Date: 20250409
  Receipt Date: 20250409
  Transmission Date: 20250716
  Serious: Yes (Other)
  Sender: DR REDDYS
  Company Number: None

PATIENT
  Age: 16 Year
  Sex: Female

DRUGS (2)
  1. RISPERIDONE [Suspect]
     Active Substance: RISPERIDONE
     Indication: Psychotic disorder
     Dosage: NIGHTLY
     Route: 048
     Dates: start: 2018, end: 2018
  2. RISPERIDONE [Suspect]
     Active Substance: RISPERIDONE
     Dosage: NIGHTLY; INCREASED
     Dates: start: 2018, end: 2018

REACTIONS (3)
  - Hyperprolactinaemia [Recovered/Resolved]
  - Neutropenia [Recovered/Resolved]
  - Menstruation irregular [Recovered/Resolved]

NARRATIVE: CASE EVENT DATE: 20180101
